FAERS Safety Report 7934945-2 (Version None)
Quarter: 2011Q4

REPORT INFORMATION
  Report Type: 
  Country: None (occurrence: None)
  Receive Date: 20111122
  Receipt Date: 20111118
  Transmission Date: 20120403
  Serious: No
  Sender: FDA-Public Use
  Company Number: US-PFIZER INC-2011182049

PATIENT
  Sex: Male
  Weight: 82.086 kg

DRUGS (1)
  1. IBUPROFEN (ADVIL) [Suspect]
     Indication: NASOPHARYNGITIS
     Dosage: 200 MG, AS NEEDED
     Route: 048
     Dates: start: 19950101

REACTIONS (1)
  - GLOSSODYNIA [None]
